FAERS Safety Report 5340922-0 (Version None)
Quarter: 2007Q2

REPORT INFORMATION
  Report Type: 
  Country: None (occurrence: None)
  Receive Date: 20070531
  Receipt Date: 20070523
  Transmission Date: 20071010
  Serious: Yes (Hospitalization)
  Sender: FDA-Public Use
  Company Number: AT-MERCK-0705AUT00010

PATIENT
  Sex: Female

DRUGS (5)
  1. SINGULAIR [Suspect]
     Indication: ASTHMA
     Route: 048
     Dates: end: 20070508
  2. SERETIDE [Concomitant]
     Indication: ASTHMA
     Route: 065
  3. FENOTEROL HYDROBROMIDE AND IPRATROPIUM BROMIDE [Concomitant]
     Indication: ASTHMA
     Route: 065
  4. LIOTRIX [Concomitant]
     Indication: THYROID DISORDER
     Route: 065
  5. DILTIAZEM HYDROCHLORIDE [Concomitant]
     Route: 065

REACTIONS (4)
  - ASTHMA [None]
  - EOSINOPHILIA [None]
  - PERTUSSIS [None]
  - PYREXIA [None]
